FAERS Safety Report 14881985 (Version 1)
Quarter: 2018Q2

REPORT INFORMATION
  Report Type: Spontaneous
  Country: JP (occurrence: JP)
  Receive Date: 20180511
  Receipt Date: 20180511
  Transmission Date: 20180711
  Serious: Yes (Hospitalization)
  Sender: FDA-Public Use
  Company Number: JP-SA-2018SA133554

PATIENT
  Age: 84 Year
  Sex: Male

DRUGS (3)
  1. AVAPRO [Suspect]
     Active Substance: IRBESARTAN
     Route: 048
  2. AMLODIN [Suspect]
     Active Substance: AMLODIPINE BESYLATE
     Route: 048
  3. SITAGLIPTIN PHOSPHATE [Concomitant]
     Active Substance: SITAGLIPTIN PHOSPHATE

REACTIONS (2)
  - Fall [Unknown]
  - Brain contusion [Unknown]
